FAERS Safety Report 13389879 (Version 1)
Quarter: 2017Q1

REPORT INFORMATION
  Report Type: Report from Study
  Country: US (occurrence: US)
  Receive Date: 20170331
  Receipt Date: 20170331
  Transmission Date: 20170429
  Serious: No
  Sender: FDA-Public Use
  Company Number: US-AMGEN-USASL2017047867

PATIENT
  Sex: Female

DRUGS (1)
  1. ENBREL [Suspect]
     Active Substance: ETANERCEPT
     Indication: RHEUMATOID ARTHRITIS
     Dosage: 50 MG, QWK
     Route: 065

REACTIONS (8)
  - Oropharyngeal pain [Unknown]
  - Paranasal sinus hypersecretion [Unknown]
  - Feeling abnormal [Not Recovered/Not Resolved]
  - Renal disorder [Unknown]
  - Pain [Unknown]
  - Headache [Unknown]
  - Cough [Unknown]
  - Sinus congestion [Unknown]

NARRATIVE: CASE EVENT DATE: 20170324
